FAERS Safety Report 5835350-5 (Version None)
Quarter: 2008Q3

REPORT INFORMATION
  Report Type: 
  Country: None (occurrence: None)
  Receive Date: 20080731
  Receipt Date: 20080616
  Transmission Date: 20090109
  Serious: Yes (Hospitalization, Other)
  Sender: FDA-Public Use
  Company Number: 08-0061

PATIENT
  Age: 40 Year
  Sex: Female
  Weight: 48 kg

DRUGS (2)
  1. IBUPROFEN TABLETS [Suspect]
     Indication: MIGRAINE
     Dosage: 1800MG DAILY AS NEEDED
  2. RELPAX [Suspect]
     Indication: MIGRAINE
     Dosage: 40MG AS NEEDED
     Dates: start: 20061101

REACTIONS (3)
  - BLOOD CREATININE INCREASED [None]
  - HYPOTHYROIDISM [None]
  - NON-HODGKIN'S LYMPHOMA [None]
